FAERS Safety Report 6616992-6 (Version None)
Quarter: 2010Q1

REPORT INFORMATION
  Report Type: 
  Country: None (occurrence: None)
  Receive Date: 20100301
  Receipt Date: 20100217
  Transmission Date: 20100710
  Serious: Yes (Hospitalization)
  Sender: FDA-Public Use
  Company Number: 510296

PATIENT
  Age: 71 Year
  Sex: Female

DRUGS (3)
  1. LEUCOVORIN CALCIUM [Suspect]
     Indication: COLON CANCER
     Dosage: 2 WEEK, INTRAVENOUS
     Route: 042
     Dates: start: 20091101
  2. FLUOROURACIL [Suspect]
     Indication: COLON CANCER
     Dosage: 2 WEEK, INTRAVENOUS
     Route: 042
     Dates: start: 20091101
  3. AVASTIN [Concomitant]

REACTIONS (4)
  - CHEST PAIN [None]
  - DYSPNOEA [None]
  - EPISTAXIS [None]
  - THROMBOSIS [None]
